FAERS Safety Report 10619230 (Version 1)
Quarter: 2014Q4

REPORT INFORMATION
  Report Type: Spontaneous
  Country: KR (occurrence: KR)
  Receive Date: 20141202
  Receipt Date: 20141202
  Transmission Date: 20150529
  Serious: Yes (Life-Threatening)
  Sender: FDA-Public Use
  Company Number: KR-MYLANLABS-2014M1012207

PATIENT

DRUGS (5)
  1. TRANEXAMIC ACID. [Concomitant]
     Active Substance: TRANEXAMIC ACID
     Dosage: 500 MG EVERY 8 HOURS
     Route: 042
  2. VITAMIN K [Concomitant]
     Active Substance: PHYTONADIONE
     Dosage: 10 MG EVERY 8 HOURS
     Route: 042
  3. VALPROATE [Suspect]
     Active Substance: VALPROATE SODIUM
     Indication: SEIZURE
     Dosage: 400 MG EVERY 8 HOURS
     Route: 065
  4. CEFTRIAXONE. [Concomitant]
     Active Substance: CEFTRIAXONE
     Indication: ANTIBIOTIC PROPHYLAXIS
     Dosage: 2 G EVERY 24 HOURS
     Route: 065
  5. NICARDIPINE [Concomitant]
     Active Substance: NICARDIPINE
     Dosage: 2 MG/HR
     Route: 042

REACTIONS (1)
  - Interstitial lung disease [Recovered/Resolved]
